FAERS Safety Report 16059619 (Version 1)
Quarter: 2019Q1

REPORT INFORMATION
  Report Type: Spontaneous
  Country: US (occurrence: US)
  Receive Date: 20190311
  Receipt Date: 20190311
  Transmission Date: 20190418
  Serious: Yes (Hospitalization)
  Sender: FDA-Public Use
  Company Number: US-B.I. PHARMACEUTICALS,INC./RIDGEFIELD-2019-BI-009762

PATIENT
  Sex: Female

DRUGS (6)
  1. NICOTINE. [Concomitant]
     Active Substance: NICOTINE
     Indication: SMOKING CESSATION THERAPY
     Dosage: NICOTINE GUM
     Route: 065
  2. NICOTINE. [Concomitant]
     Active Substance: NICOTINE
     Dosage: NICOTINE LOZENGES
     Route: 065
  3. NICOTROL [Concomitant]
     Active Substance: NICOTINE
     Indication: SMOKING CESSATION THERAPY
     Dosage: 10 MG CARTRIDGE WITH 4 MG DELIVERED ONLY USED LIKE 3 CARTRIDGES A DAY
     Route: 065
     Dates: start: 201103, end: 2011
  4. NICOTINE. [Concomitant]
     Active Substance: NICOTINE
     Dosage: NICOTINE PATCHES
     Route: 065
     Dates: start: 201512, end: 201512
  5. CATAPRES [Suspect]
     Active Substance: CLONIDINE HYDROCHLORIDE
     Indication: PRODUCT USED FOR UNKNOWN INDICATION
     Route: 065
  6. ATENOLOL. [Concomitant]
     Active Substance: ATENOLOL
     Indication: PRODUCT USED FOR UNKNOWN INDICATION
     Route: 065

REACTIONS (1)
  - Hypertensive crisis [Unknown]
